FAERS Safety Report 8769558 (Version 3)
Quarter: 2013Q1

REPORT INFORMATION
  Report Type: Spontaneous
  Country: US (occurrence: US)
  Receive Date: 20120905
  Receipt Date: 20130325
  Transmission Date: 20140127
  Serious: No
  Sender: FDA-Public Use
  Company Number: US-009507513-1208USA007625

PATIENT
  Sex: Male

DRUGS (6)
  1. PEGINTRON [Suspect]
     Indication: HEPATITIS C
     Dosage: UNK
     Dates: start: 20120624, end: 20120903
  2. PEGINTRON [Suspect]
     Dosage: UNK
     Dates: end: 20121115
  3. REBETOL [Suspect]
     Indication: HEPATITIS C
     Dosage: UNK
     Route: 048
     Dates: start: 20120624, end: 20120903
  4. REBETOL [Suspect]
     Dosage: UNK
     Route: 048
     Dates: end: 20121115
  5. VICTRELIS [Suspect]
     Indication: HEPATITIS C
     Dosage: UNK
     Route: 048
     Dates: start: 20120722, end: 20120903
  6. VICTRELIS [Suspect]
     Dosage: UNK
     Route: 048
     Dates: end: 20121115

REACTIONS (8)
  - Amnesia [Unknown]
  - White blood cell count decreased [Unknown]
  - Headache [Unknown]
  - Weight decreased [Unknown]
  - Rash [Unknown]
  - Decreased appetite [Unknown]
  - White blood cell count decreased [Unknown]
  - White blood cell count decreased [Unknown]
